FAERS Safety Report 17129394 (Version 1)
Quarter: 2019Q4

REPORT INFORMATION
  Report Type: Spontaneous
  Country: US (occurrence: US)
  Receive Date: 20191209
  Receipt Date: 20191209
  Transmission Date: 20200122
  Serious: Yes (Other)
  Sender: FDA-Public Use
  Company Number: US-PFIZER INC-2019528171

PATIENT
  Age: 62 Year
  Sex: Female
  Weight: 36.29 kg

DRUGS (2)
  1. DEMEROL [Suspect]
     Active Substance: MEPERIDINE HYDROCHLORIDE
     Indication: PAIN
     Dosage: 50 MG, EVERY 4-6 HOURS
     Dates: start: 1988
  2. DEMEROL [Suspect]
     Active Substance: MEPERIDINE HYDROCHLORIDE
     Indication: PAIN
     Dosage: 100 MG, AS NEEDED (EVERY 8-12 HOURS)

REACTIONS (4)
  - Product dispensing error [Unknown]
  - Product use issue [Unknown]
  - Seizure [Unknown]
  - Off label use [Unknown]
